FAERS Safety Report 5558567-6 (Version None)
Quarter: 2007Q4

REPORT INFORMATION
  Report Type: 
  Country: None (occurrence: None)
  Receive Date: 20071214
  Receipt Date: 20070919
  Transmission Date: 20080405
  Serious: No
  Sender: FDA-Public Use
  Company Number: US-ABBOTT-07P-163-0415955-00

PATIENT
  Sex: Female
  Weight: 56.75 kg

DRUGS (5)
  1. HUMIRA [Suspect]
     Indication: RHEUMATOID ARTHRITIS
     Route: 058
     Dates: start: 20050101, end: 20070801
  2. HUMIRA [Suspect]
     Route: 058
     Dates: start: 20070801
  3. NAPROXEN SODIUM [Concomitant]
     Indication: ARTHRALGIA
  4. CHANTIX [Concomitant]
     Indication: EX-SMOKER
  5. CARBA DOPA-LEVO [Concomitant]
     Indication: RESTLESS LEGS SYNDROME

REACTIONS (2)
  - ERYTHEMA [None]
  - NODULE [None]
